FAERS Safety Report 8313820-8 (Version None)
Quarter: 2012Q2

REPORT INFORMATION
  Report Type: 
  Country: None (occurrence: None)
  Receive Date: 20120426
  Receipt Date: 20120416
  Transmission Date: 20120825
  Serious: Yes (Hospitalization)
  Sender: FDA-Public Use
  Company Number: US-JNJFOC-20111202966

PATIENT
  Sex: Male
  Weight: 122.47 kg

DRUGS (4)
  1. COGENTIN [Concomitant]
     Indication: PAIN
     Route: 065
  2. REMICADE [Suspect]
     Indication: ANKYLOSING SPONDYLITIS
     Route: 042
     Dates: start: 20100923, end: 20110401
  3. PLAQUENIL [Concomitant]
     Indication: ANKYLOSING SPONDYLITIS
     Route: 065
  4. VITAMIN D [Concomitant]
     Indication: VITAMIN D DEFICIENCY
     Route: 065

REACTIONS (1)
  - BLISTER [None]
